FAERS Safety Report 24377149 (Version 2)
Quarter: 2024Q4

REPORT INFORMATION
  Report Type: Spontaneous
  Country: GB (occurrence: GB)
  Receive Date: 20240930
  Receipt Date: 20241018
  Transmission Date: 20250115
  Serious: Yes (Hospitalization)
  Sender: AMGEN
  Company Number: GB-AMGEN-GBRSP2024191561

PATIENT
  Sex: Female

DRUGS (1)
  1. ARANESP [Suspect]
     Active Substance: DARBEPOETIN ALFA
     Indication: Transplant
     Dosage: 80 MICROGRAM, Q4WK
     Route: 058

REACTIONS (3)
  - Unevaluable event [Unknown]
  - COVID-19 [Unknown]
  - Renal disorder [Unknown]
